FAERS Safety Report 5646794-9 (Version None)
Quarter: 2008Q1

REPORT INFORMATION
  Report Type: 
  Country: None (occurrence: None)
  Receive Date: 20080228
  Receipt Date: 20080219
  Transmission Date: 20080703
  Serious: Yes (Other)
  Sender: FDA-Public Use
  Company Number: 18438

PATIENT
  Age: 39 Year
  Sex: Male

DRUGS (5)
  1. METHOTREXATE [Suspect]
     Indication: RHEUMATOID ARTHRITIS
     Dosage: 10 MG WEEKLY
  2. METHOTREXATE [Suspect]
     Dosage: 15 MG WEEKLY
     Dates: start: 20071213
  3. GABAPENTIN [Concomitant]
  4. ACETAMINOPHEN [Concomitant]
  5. EPILIM [Suspect]
     Indication: EPILEPSY
     Dosage: 500 MG BID PO
     Route: 048
     Dates: start: 20050421

REACTIONS (3)
  - DRUG INEFFECTIVE [None]
  - DRUG INTERACTION [None]
  - EPILEPSY [None]
